FAERS Safety Report 10914993 (Version 2)
Quarter: 2015Q2

REPORT INFORMATION
  Report Type: Spontaneous
  Country: CO (occurrence: CO)
  Receive Date: 20150314
  Receipt Date: 20150417
  Transmission Date: 20150821
  Serious: Yes (Other)
  Sender: FDA-Public Use
  Company Number: CO-AMGEN-COLSP2015022127

PATIENT
  Age: 41 Year
  Sex: Male

DRUGS (2)
  1. PARICALCITOL. [Concomitant]
     Active Substance: PARICALCITOL
     Dosage: 7.5 MUG, POST-DIALYSIS
     Route: 042
     Dates: start: 20141212
  2. MIMPARA [Suspect]
     Active Substance: CINACALCET HYDROCHLORIDE
     Indication: HYPERPARATHYROIDISM SECONDARY
     Dosage: 60 MG, QD
     Route: 065
     Dates: start: 201306

REACTIONS (5)
  - Therapeutic response decreased [Recovered/Resolved]
  - Blood parathyroid hormone abnormal [Unknown]
  - Hyperplasia [Unknown]
  - Blood calcium abnormal [Unknown]
  - Adenoma benign [Unknown]

NARRATIVE: CASE EVENT DATE: 201309
